FAERS Safety Report 7281751-0 (Version None)
Quarter: 2011Q1

REPORT INFORMATION
  Report Type: 
  Country: None (occurrence: None)
  Receive Date: 20110208
  Receipt Date: 20100423
  Transmission Date: 20110831
  Serious: No
  Sender: FDA-Public Use
  Company Number: US-PFIZER INC-2010037194

PATIENT
  Sex: Female

DRUGS (2)
  1. SUTENT [Suspect]
     Indication: GASTROINTESTINAL STROMAL TUMOUR
     Dosage: 25 MG/DAY
  2. SUTENT [Suspect]
     Dosage: 50 MG/DAY

REACTIONS (1)
  - MOUTH ULCERATION [None]
